FAERS Safety Report 15299863 (Version 3)
Quarter: 2018Q4

REPORT INFORMATION
  Report Type: Report from Study
  Country: US (occurrence: US)
  Receive Date: 20180821
  Receipt Date: 20181023
  Transmission Date: 20190204
  Serious: Yes (Death, Hospitalization)
  Sender: FDA-Public Use
  Company Number: US-ROCHE-1958120

PATIENT
  Age: 60 Year
  Sex: Male
  Weight: 73 kg

DRUGS (24)
  1. CLONIDINE. [Concomitant]
     Active Substance: CLONIDINE
     Indication: HYPERTENSION
     Route: 065
     Dates: start: 2012, end: 20170531
  2. CLONIDINE. [Concomitant]
     Active Substance: CLONIDINE
     Route: 065
     Dates: start: 20170608
  3. SYNTHROID [Concomitant]
     Active Substance: LEVOTHYROXINE SODIUM
     Indication: CONSTIPATION
     Route: 065
     Dates: start: 20170511
  4. POTASSIUM CHLORIDE. [Concomitant]
     Active Substance: POTASSIUM CHLORIDE
     Indication: PROPHYLAXIS
     Route: 065
     Dates: start: 20170531, end: 20170531
  5. HYDROCHLOROTHIAZIDE. [Concomitant]
     Active Substance: HYDROCHLOROTHIAZIDE
     Route: 065
     Dates: start: 20170608
  6. AMLODIPINE [Concomitant]
     Active Substance: AMLODIPINE BESYLATE
     Indication: HYPERTENSION
     Route: 065
     Dates: start: 20170531
  7. PEG-INTERFERON ALFA 2A [Suspect]
     Active Substance: PEGINTERFERON ALFA-2A
     Indication: NEOPLASM
     Dosage: DOSE: 180 MICROGRAMS
     Route: 058
     Dates: start: 20170511
  8. IBUPROFEN. [Concomitant]
     Active Substance: IBUPROFEN
     Indication: PAIN
     Route: 065
     Dates: start: 2015
  9. SENOKOT [Concomitant]
     Active Substance: SENNOSIDES
     Indication: CONSTIPATION
     Route: 065
     Dates: start: 2015
  10. TAMSULOSIN [Concomitant]
     Active Substance: TAMSULOSIN
     Indication: URINARY RETENTION
     Route: 065
     Dates: start: 2016
  11. ZOFRAN [Concomitant]
     Active Substance: ONDANSETRON HYDROCHLORIDE
     Indication: NAUSEA
     Route: 065
     Dates: start: 2016
  12. MIRALAX [Concomitant]
     Active Substance: POLYETHYLENE GLYCOL 3350
     Indication: CONSTIPATION
     Route: 065
     Dates: start: 2015
  13. OXYCODONE [Concomitant]
     Active Substance: OXYCODONE
     Indication: PAIN
     Route: 065
     Dates: start: 20170515
  14. HYDROCHLOROTHIAZIDE. [Concomitant]
     Active Substance: HYDROCHLOROTHIAZIDE
     Indication: HYPERTENSION
     Route: 065
     Dates: start: 20170425, end: 20170531
  15. SYNTHROID [Concomitant]
     Active Substance: LEVOTHYROXINE SODIUM
     Indication: HYPOTHYROIDISM
     Route: 065
     Dates: start: 2012
  16. XANAX [Concomitant]
     Active Substance: ALPRAZOLAM
     Indication: ANXIETY
     Route: 065
     Dates: start: 2016
  17. PHENERGAN [Concomitant]
     Active Substance: PROMETHAZINE HYDROCHLORIDE
     Indication: NAUSEA
     Route: 065
     Dates: start: 2016
  18. ATEZOLIZUMAB. [Suspect]
     Active Substance: ATEZOLIZUMAB
     Indication: NEOPLASM
     Dosage: DATE OF MOST RECENT DOSE: 08/JUN/2017
     Route: 042
     Dates: start: 20170511
  19. COLACE [Concomitant]
     Active Substance: DOCUSATE SODIUM
     Indication: CONSTIPATION
     Route: 065
     Dates: start: 2015
  20. MS CONTIN [Concomitant]
     Active Substance: MORPHINE SULFATE
     Indication: PAIN
     Route: 065
     Dates: start: 20170525, end: 20170527
  21. BEVACIZUMAB. [Suspect]
     Active Substance: BEVACIZUMAB
     Indication: NEOPLASM
     Dosage: DATE OF MOST RECENT DOSE: 08/JUN/2017
     Route: 042
     Dates: start: 20170511
  22. BENAZEPRIL [Concomitant]
     Active Substance: BENAZEPRIL HYDROCHLORIDE
     Indication: HYPERTENSION
     Route: 065
     Dates: start: 201701, end: 20170531
  23. LISINOPRIL. [Concomitant]
     Active Substance: LISINOPRIL
     Indication: HYPERTENSION
     Route: 065
     Dates: start: 20170608, end: 20170608
  24. ACETAMINOPHEN/OXYCODONE [Concomitant]
     Active Substance: ACETAMINOPHEN\OXYCODONE HYDROCHLORIDE
     Indication: PAIN
     Route: 065
     Dates: start: 20170425, end: 20170518

REACTIONS (1)
  - Skin ulcer [Not Recovered/Not Resolved]

NARRATIVE: CASE EVENT DATE: 20170608
